FAERS Safety Report 8501876-9 (Version None)
Quarter: 2012Q3

REPORT INFORMATION
  Report Type: 
  Country: None (occurrence: None)
  Receive Date: 20120711
  Receipt Date: 20120706
  Transmission Date: 20120928
  Serious: Yes (Other)
  Sender: FDA-Public Use
  Company Number: PHHY2012JP034621

PATIENT
  Sex: Male
  Weight: 72 kg

DRUGS (6)
  1. TEGRETOL [Suspect]
     Indication: EPILEPSY
     Dosage: 200 MG, BID
     Route: 048
     Dates: start: 20120324, end: 20120417
  2. FAMOTIDINE [Concomitant]
     Indication: GASTRITIS
     Dosage: 10 MG, UNK
     Route: 048
     Dates: start: 20120111, end: 20120416
  3. PREDNISOLONE [Concomitant]
     Indication: BRAIN NEOPLASM
     Dosage: 20 MG, UNK
     Route: 048
     Dates: start: 20120111
  4. PREDNISOLONE [Concomitant]
     Dosage: 70 MG, UNK
     Route: 048
     Dates: start: 20120422
  5. VENILON [Concomitant]
     Dosage: 20 G, UNK
     Dates: start: 20120418
  6. PURSENNID [Concomitant]
     Indication: CONSTIPATION
     Dosage: 12 MG, UNK
     Route: 048
     Dates: start: 20111230

REACTIONS (7)
  - BLOOD SODIUM DECREASED [None]
  - DRUG RASH WITH EOSINOPHILIA AND SYSTEMIC SYMPTOMS [None]
  - LIVER DISORDER [None]
  - RASH [None]
  - BLOOD POTASSIUM DECREASED [None]
  - ERYTHEMA [None]
  - WHITE BLOOD CELL COUNT DECREASED [None]
